FAERS Safety Report 19720083 (Version 1)
Quarter: 2021Q3

REPORT INFORMATION
  Report Type: Report from Study
  Country: US (occurrence: US)
  Receive Date: 20210818
  Receipt Date: 20210818
  Transmission Date: 20211014
  Serious: Yes (Hospitalization)
  Sender: FDA-Public Use
  Company Number: US-BAUSCH-BL-2021-008994

PATIENT
  Age: 60 Year
  Sex: Male
  Weight: 75.82 kg

DRUGS (3)
  1. XIFAXAN [Suspect]
     Active Substance: RIFAXIMIN
     Dosage: FOR A PERIOD OF TIME
     Route: 048
     Dates: start: 2020, end: 2020
  2. XIFAXAN [Suspect]
     Active Substance: RIFAXIMIN
     Route: 048
  3. XIFAXAN [Suspect]
     Active Substance: RIFAXIMIN
     Indication: HEPATIC ENCEPHALOPATHY
     Route: 048

REACTIONS (7)
  - Inappropriate schedule of product administration [Unknown]
  - Symptom recurrence [Recovering/Resolving]
  - Ammonia increased [Recovering/Resolving]
  - Ill-defined disorder [Unknown]
  - Product dose omission in error [Unknown]
  - Treatment noncompliance [Unknown]
  - Hepatic encephalopathy [Recovering/Resolving]

NARRATIVE: CASE EVENT DATE: 2020
